FAERS Safety Report 23598724 (Version 1)
Quarter: 2024Q1

REPORT INFORMATION
  Report Type: Spontaneous
  Country: US (occurrence: US)
  Receive Date: 20240306
  Receipt Date: 20240306
  Transmission Date: 20240409
  Serious: No
  Sender: FDA-Public Use
  Company Number: US-STRIDES ARCOLAB LIMITED-2023SP018158

PATIENT
  Age: 57 Year
  Sex: Male

DRUGS (9)
  1. PREDNISOLONE [Suspect]
     Active Substance: PREDNISOLONE
     Indication: Autoimmune heparin-induced thrombocytopenia
     Dosage: 1 MILLIGRAM/KILOGRAM/ DAILY
     Route: 065
  2. PREDNISOLONE [Suspect]
     Active Substance: PREDNISOLONE
     Dosage: UNK, (AFTER 4-6 WEEK TAPER DOSE)
     Route: 065
  3. HEPARIN [Concomitant]
     Active Substance: HEPARIN SODIUM
     Indication: Anticoagulant therapy
     Dosage: UNK ON DAY ONE
     Route: 065
  4. BIVALIRUDIN [Concomitant]
     Active Substance: BIVALIRUDIN
     Indication: Autoimmune heparin-induced thrombocytopenia
     Dosage: UNK
     Route: 065
  5. ARGATROBAN [Concomitant]
     Active Substance: ARGATROBAN
     Indication: Autoimmune heparin-induced thrombocytopenia
     Dosage: UNK ON DAY FIVE
     Route: 065
  6. SOLU-MEDROL [Concomitant]
     Active Substance: METHYLPREDNISOLONE SODIUM SUCCINATE
     Indication: Autoimmune heparin-induced thrombocytopenia
     Dosage: 250 MILLIGRAM, EVERY 6 HRS,ON DAYS 14-15
     Route: 065
  7. PRIVIGEN [Concomitant]
     Active Substance: HUMAN IMMUNOGLOBULIN G
     Indication: Autoimmune heparin-induced thrombocytopenia
     Dosage: 1 GRAM PER KILOGRAM N DAY 15 AND ON DAYS 20-21
     Route: 042
  8. PRIVIGEN [Concomitant]
     Active Substance: HUMAN IMMUNOGLOBULIN G
     Dosage: 1 GRAM PER KILOGRAM DAILY ON DAYS 20-21
     Route: 042
  9. DEXAMETHASONE [Concomitant]
     Active Substance: DEXAMETHASONE
     Indication: Autoimmune heparin-induced thrombocytopenia
     Dosage: 40 MILLIGRAM PER DAYS ON 20-23
     Route: 042

REACTIONS (1)
  - Off label use [Unknown]
